FAERS Safety Report 18551223 (Version 2)
Quarter: 2021Q1

REPORT INFORMATION
  Report Type: Spontaneous
  Country: FI (occurrence: FI)
  Receive Date: 20201126
  Receipt Date: 20210111
  Transmission Date: 20210419
  Serious: Yes (Disabling, Other)
  Sender: FDA-Public Use
  Company Number: FI-ABBVIE-20K-055-3585734-00

PATIENT
  Age: 29 Year
  Sex: Female

DRUGS (15)
  1. ROACTEMRA [Suspect]
     Active Substance: TOCILIZUMAB
     Indication: PRODUCT USED FOR UNKNOWN INDICATION
     Dosage: UNK
     Route: 065
     Dates: start: 2016, end: 2016
  2. PREDNISONE. [Suspect]
     Active Substance: PREDNISONE
     Indication: PRODUCT USED FOR UNKNOWN INDICATION
     Route: 065
     Dates: end: 2010
  3. PREDNISONE. [Suspect]
     Active Substance: PREDNISONE
     Dosage: 5?15 MG PER DAY
     Route: 065
     Dates: start: 2011, end: 2012
  4. HYDROXYCHLOROQUINE [Suspect]
     Active Substance: HYDROXYCHLOROQUINE
     Indication: PRODUCT USED FOR UNKNOWN INDICATION
     Route: 065
  5. PREDNISONE. [Suspect]
     Active Substance: PREDNISONE
     Dosage: 5?15 MG PER DAY
     Route: 065
     Dates: start: 2010, end: 2011
  6. HUMIRA [Suspect]
     Active Substance: ADALIMUMAB
     Indication: PRODUCT USED FOR UNKNOWN INDICATION
     Dosage: UNK
     Route: 058
     Dates: end: 2014
  7. METHOTREXATE. [Suspect]
     Active Substance: METHOTREXATE
     Indication: PRODUCT USED FOR UNKNOWN INDICATION
     Route: 048
     Dates: end: 2010
  8. CIMZIA [Suspect]
     Active Substance: CERTOLIZUMAB PEGOL
     Dosage: UNK
     Route: 065
     Dates: start: 2015, end: 2016
  9. SULFASALAZINE. [Suspect]
     Active Substance: SULFASALAZINE
     Indication: PRODUCT USED FOR UNKNOWN INDICATION
     Route: 065
  10. METHOTREXATE. [Suspect]
     Active Substance: METHOTREXATE
     Dosage: 15?25 MG PER WEEK
     Route: 048
     Dates: start: 2010, end: 2011
  11. METHOTREXATE. [Suspect]
     Active Substance: METHOTREXATE
     Dosage: 15?25 MG PER WEEK
     Route: 058
     Dates: start: 2011, end: 2012
  12. CIMZIA [Suspect]
     Active Substance: CERTOLIZUMAB PEGOL
     Indication: PRODUCT USED FOR UNKNOWN INDICATION
     Dosage: UNK
     Route: 065
     Dates: start: 2014, end: 2015
  13. ENBREL [Suspect]
     Active Substance: ETANERCEPT
     Indication: PRODUCT USED FOR UNKNOWN INDICATION
     Route: 065
  14. METHOTREXATE. [Suspect]
     Active Substance: METHOTREXATE
     Dosage: 15?25 MG PER WEEK
     Route: 058
     Dates: start: 2012, end: 2016
  15. PREDNISONE. [Suspect]
     Active Substance: PREDNISONE
     Dosage: 5?15 MG PER DAY
     Route: 065
     Dates: start: 2012, end: 2016

REACTIONS (12)
  - Unevaluable event [Unknown]
  - Drug ineffective [Unknown]
  - Arthritis bacterial [Unknown]
  - Arthralgia [Unknown]
  - Arthritis [Unknown]
  - Investigation abnormal [Unknown]
  - Drug ineffective [Recovered/Resolved]
  - Joint swelling [Unknown]
  - Infection [Unknown]
  - Rheumatoid arthritis [Not Recovered/Not Resolved]
  - Impaired work ability [Unknown]
  - Wrist fracture [Unknown]

NARRATIVE: CASE EVENT DATE: 2014
